FAERS Safety Report 4505480-9 (Version None)
Quarter: 2004Q4

REPORT INFORMATION
  Report Type: 
  Country: None (occurrence: None)
  Receive Date: 20041118
  Receipt Date: 20041110
  Transmission Date: 20050328
  Serious: Yes (Death, Life-Threatening, Hospitalization)
  Sender: FDA-Public Use
  Company Number: 23100206

PATIENT
  Age: 3 Month
  Sex: Male
  Weight: 6.3 kg

DRUGS (3)
  1. ARGATROBAN [Suspect]
     Indication: HEPARIN-INDUCED THROMBOCYTOPENIA
     Dosage: 1 MCG/KG/MIN CONT IV
     Route: 042
     Dates: start: 20041106, end: 20041107
  2. ARGATROBAN [Suspect]
     Indication: HEPARIN-INDUCED THROMBOCYTOPENIA
     Dosage: 0.8 MCG/KG/MIN CONT IV
     Route: 042
     Dates: start: 20041108, end: 20041109
  3. ARGATROBAN [Suspect]
     Indication: HEPARIN-INDUCED THROMBOCYTOPENIA
     Dosage: 0.7 MCG/KG/MIN CONT IV
     Route: 042
     Dates: start: 20041109, end: 20041109

REACTIONS (23)
  - ACTIVATED PARTIAL THROMBOPLASTIN TIME PROLONGED [None]
  - ASCITES [None]
  - BRAIN OEDEMA [None]
  - CATHETER RELATED INFECTION [None]
  - CEREBRAL HAEMORRHAGE [None]
  - CEREBRAL INFARCTION [None]
  - CEREBRAL ISCHAEMIA [None]
  - COAGULOPATHY [None]
  - EMBOLISM [None]
  - GALLBLADDER DISORDER [None]
  - GALLBLADDER OEDEMA [None]
  - HAEMORRHAGIC TRANSFORMATION STROKE [None]
  - HEPATIC FAILURE [None]
  - HEPATOMEGALY [None]
  - INTRACRANIAL HAEMATOMA [None]
  - INTRAVENTRICULAR HAEMORRHAGE [None]
  - MULTI-ORGAN FAILURE [None]
  - PROCEDURAL COMPLICATION [None]
  - RENAL DISORDER [None]
  - STAPHYLOCOCCAL SEPSIS [None]
  - SUBARACHNOID HAEMORRHAGE [None]
  - SUBCLAVIAN VEIN THROMBOSIS [None]
  - VENA CAVA THROMBOSIS [None]
